FAERS Safety Report 23579016 (Version 2)
Quarter: 2024Q2

REPORT INFORMATION
  Report Type: Spontaneous
  Country: FR (occurrence: FR)
  Receive Date: 20240229
  Receipt Date: 20240416
  Transmission Date: 20240716
  Serious: Yes (Death, Other)
  Sender: FDA-Public Use
  Company Number: FR-ASTELLAS-2024US006246

PATIENT
  Age: 67 Year
  Sex: Female

DRUGS (3)
  1. XOSPATA [Suspect]
     Active Substance: GILTERITINIB
     Indication: Leukaemia
     Dosage: 3 DF, ONCE DAILY, (40 MG 3 TABLETS DAILY)
     Route: 048
     Dates: start: 2023, end: 2024
  2. XOSPATA [Suspect]
     Active Substance: GILTERITINIB
     Dosage: 5 DF, ONCE DAILY, (5 TABLETS DAILY)(INCREASED)
     Route: 048
     Dates: start: 2024
  3. HYDREA [Concomitant]
     Active Substance: HYDROXYUREA
     Indication: Product used for unknown indication
     Dosage: 1 G, THRICE DAILY,(2 DF, THRICE DAILY, (500 MG PO 2 ON MORNING, 2 AT NOON AND 2 ON EVENING)
     Route: 048
     Dates: start: 2024

REACTIONS (3)
  - Death [Fatal]
  - Product use issue [Unknown]
  - Off label use [Unknown]

NARRATIVE: CASE EVENT DATE: 20240210
